FAERS Safety Report 22650319 (Version 1)
Quarter: 2023Q2

REPORT INFORMATION
  Report Type: Report from Study
  Country: CA (occurrence: CA)
  Receive Date: 20230628
  Receipt Date: 20230628
  Transmission Date: 20230722
  Serious: Yes (Hospitalization)
  Sender: FDA-Public Use
  Company Number: CA-HLS-202301571

PATIENT
  Age: 28 Year
  Sex: Male

DRUGS (6)
  1. CLOZARIL [Suspect]
     Active Substance: CLOZAPINE
     Indication: Schizoaffective disorder
     Dosage: RESTARTED ON MAY-2023
     Route: 048
     Dates: end: 20230614
  2. CLOZARIL [Suspect]
     Active Substance: CLOZAPINE
     Indication: Schizoaffective disorder
     Dosage: TITRATED UP TO CLOZAPINE 600 MG DAILY
     Route: 048
     Dates: start: 20211201
  3. HALDOL [Concomitant]
     Active Substance: HALOPERIDOL
     Indication: Product used for unknown indication
     Dosage: AS NEEDED
     Route: 065
  4. ZUCLOPENTHIXOL [Concomitant]
     Active Substance: ZUCLOPENTHIXOL
     Indication: Product used for unknown indication
     Route: 065
  5. ARIPIPRAZOLE [Concomitant]
     Active Substance: ARIPIPRAZOLE
     Indication: Product used for unknown indication
     Route: 065
  6. TETANUS TOXOIDS [Suspect]
     Active Substance: TETANUS TOXOIDS
     Indication: Product used for unknown indication
     Route: 065

REACTIONS (6)
  - Blood creatine phosphokinase increased [Unknown]
  - C-reactive protein increased [Unknown]
  - Pyrexia [Unknown]
  - Treatment noncompliance [Unknown]
  - Troponin increased [Unknown]
  - Off label use [Unknown]

NARRATIVE: CASE EVENT DATE: 20211201
